FAERS Safety Report 23134804 (Version 1)
Quarter: 2023Q4

REPORT INFORMATION
  Report Type: Spontaneous
  Country: CA (occurrence: CA)
  Receive Date: 20231101
  Receipt Date: 20231101
  Transmission Date: 20240110
  Serious: Yes (Hospitalization)
  Sender: FDA-Public Use
  Company Number: CA-FreseniusKabi-FK202317466

PATIENT
  Age: 64 Year
  Sex: Male

DRUGS (1)
  1. VANCOMYCIN [Suspect]
     Active Substance: VANCOMYCIN
     Indication: Infection
     Dosage: DOSAGE FORM: LIQUID
     Route: 042

REACTIONS (1)
  - Renal failure [Recovered/Resolved]
